FAERS Safety Report 6708824-2 (Version None)
Quarter: 2010Q2

REPORT INFORMATION
  Report Type: 
  Country: None (occurrence: None)
  Receive Date: 20100504
  Receipt Date: 20100421
  Transmission Date: 20101027
  Serious: No
  Sender: FDA-Public Use
  Company Number: 2009BI041932

PATIENT
  Age: 43 Year
  Sex: Female

DRUGS (1)
  1. TYSABRI [Suspect]
     Indication: MULTIPLE SCLEROSIS
     Route: 042
     Dates: start: 20080919

REACTIONS (5)
  - CYSTITIS [None]
  - FATIGUE [None]
  - FEELING COLD [None]
  - MULTIPLE SCLEROSIS RELAPSE [None]
  - RESPIRATORY TRACT INFECTION [None]
